FAERS Safety Report 9330336 (Version 1)
Quarter: 2013Q2

REPORT INFORMATION
  Report Type: Spontaneous
  Country: US (occurrence: US)
  Receive Date: 20130605
  Receipt Date: 20130605
  Transmission Date: 20140414
  Serious: Yes (Other)
  Sender: FDA-Public Use
  Company Number: US-ROCHE-1226206

PATIENT
  Age: 33 Year
  Sex: Female
  Weight: 62 kg

DRUGS (8)
  1. HERCEPTIN [Suspect]
     Indication: BREAST CANCER METASTATIC
     Route: 042
     Dates: start: 20120310
  2. PERJETA [Suspect]
     Indication: BREAST CANCER METASTATIC
     Route: 042
     Dates: start: 20120310, end: 20130424
  3. PREDNISONE [Concomitant]
     Dosage: 30 MG OR AS DIRECTED (TAPER)
     Route: 048
  4. ALBUTEROL INHALER [Concomitant]
     Indication: EOSINOPHILIC BRONCHITIS
     Route: 065
     Dates: start: 20130428
  5. VITAMIN C [Concomitant]
     Route: 048
     Dates: start: 20130208
  6. VITAMIN B12 [Concomitant]
     Route: 048
     Dates: start: 20121228
  7. FISH OIL [Concomitant]
     Route: 048
     Dates: start: 20130208
  8. ADVAIR [Concomitant]
     Dosage: 250/50 MCG, 1 PUFF TWICE A DAY.
     Route: 048
     Dates: start: 20130514

REACTIONS (2)
  - Pneumonitis [Unknown]
  - Eosinophilic bronchitis [Recovering/Resolving]
